FAERS Safety Report 11617956 (Version 1)
Quarter: 2015Q4

REPORT INFORMATION
  Report Type: Spontaneous
  Country: US (occurrence: US)
  Receive Date: 20151010
  Receipt Date: 20151010
  Transmission Date: 20160304
  Serious: Yes (Hospitalization)
  Sender: FDA-Public Use
  Company Number: US-ZYDUS-009160

PATIENT
  Age: 60 Year
  Sex: Male

DRUGS (9)
  1. FENTANYL. [Concomitant]
     Active Substance: FENTANYL
     Indication: PRODUCT USED FOR UNKNOWN INDICATION
     Route: 042
  2. EPHEDRINE. [Concomitant]
     Active Substance: EPHEDRINE
     Indication: BLOOD PRESSURE MANAGEMENT
  3. CLONIDINE. [Suspect]
     Active Substance: CLONIDINE
     Indication: SPINAL ANAESTHESIA
     Route: 024
  4. BUPIVACAINE [Suspect]
     Active Substance: BUPIVACAINE
     Indication: SPINAL ANAESTHESIA
     Route: 024
  5. PROPOFOL. [Concomitant]
     Active Substance: PROPOFOL
     Indication: GENERAL ANAESTHESIA
  6. HYDROMORPHONE/HYDROMORPHONE HYDROCHLORIDE [Suspect]
     Active Substance: HYDROMORPHONE
     Indication: SPINAL ANAESTHESIA
     Route: 024
  7. MIDAZOLAM [Concomitant]
     Active Substance: MIDAZOLAM\MIDAZOLAM HYDROCHLORIDE
     Indication: PRODUCT USED FOR UNKNOWN INDICATION
     Route: 042
  8. SUXAMETHONIUM [Concomitant]
     Active Substance: SUCCINYLCHOLINE
     Indication: GENERAL ANAESTHESIA
  9. PHENYLEPHRINE [Concomitant]
     Active Substance: PHENYLEPHRINE\PHENYLEPHRINE HYDROCHLORIDE
     Indication: BLOOD PRESSURE MANAGEMENT

REACTIONS (3)
  - Muscular weakness [Recovered/Resolved]
  - Back pain [Recovered/Resolved]
  - Hypoaesthesia [Recovered/Resolved]
